FAERS Safety Report 4781035-6 (Version None)
Quarter: 2005Q3

REPORT INFORMATION
  Report Type: 
  Country: None (occurrence: None)
  Receive Date: 20050926
  Receipt Date: 20050914
  Transmission Date: 20060218
  Serious: No
  Sender: FDA-Public Use
  Company Number: 2005-03441

PATIENT
  Age: 37 Year
  Sex: Female

DRUGS (5)
  1. DEXAMETHASONE SODIUM PHOSPHATE [Suspect]
     Indication: ANTIINFLAMMATORY THERAPY
     Dosage: 100 MG OVER 2HRSX3D, Q28D, INTRAVENOUS
     Route: 042
  2. CYCLOPHOSPHAMIDE [Suspect]
     Dosage: SEE IMAGE
     Dates: end: 20040101
  3. THIALIDOMIDE (THIALIDOMIDE) [Suspect]
     Indication: ERYTHEMA NODOSUM
     Dosage: 100 MG, TID, ORAL
     Route: 048
  4. THIALIDOMIDE (THIALIDOMIDE) [Suspect]
     Indication: LEPROMATOUS LEPROSY
     Dosage: 100 MG, TID, ORAL
     Route: 048
  5. PREDNISOLONE (WATSON LABORATORIES) (PREDNISOLONE) TABLETS [Concomitant]

REACTIONS (2)
  - DEEP VEIN THROMBOSIS [None]
  - DRUG INTERACTION [None]
